FAERS Safety Report 24060918 (Version 1)
Quarter: 2024Q3

REPORT INFORMATION
  Report Type: Report from Study
  Country: EG (occurrence: EG)
  Receive Date: 20240708
  Receipt Date: 20240708
  Transmission Date: 20241016
  Serious: No
  Sender: SANDOZ
  Company Number: EG-SANDOZ-SDZ2024EG033563

PATIENT
  Sex: Female

DRUGS (1)
  1. OMNITROPE [Suspect]
     Active Substance: SOMATROPIN
     Indication: Growth hormone deficiency
     Dosage: 2.5 MG, QD
     Route: 058
     Dates: start: 202204, end: 202205

REACTIONS (8)
  - Headache [Not Recovered/Not Resolved]
  - Therapy cessation [Unknown]
  - Wrong technique in product usage process [Unknown]
  - Product storage error [Unknown]
  - Product availability issue [Unknown]
  - Multiple use of single-use product [Unknown]
  - Wrong technique in product usage process [Unknown]
  - Device breakage [Unknown]
